FAERS Safety Report 5377283-7 (Version None)
Quarter: 2007Q2

REPORT INFORMATION
  Report Type: 
  Country: None (occurrence: None)
  Receive Date: 20070530
  Receipt Date: 20070220
  Transmission Date: 20071010
  Serious: No
  Sender: FDA-Public Use
  Company Number: 2007PV030847

PATIENT
  Sex: Female
  Weight: 4.0552 kg

DRUGS (2)
  1. BYETTA [Suspect]
     Indication: DRUG EXPOSURE VIA BREAST MILK
     Dosage: SC     SC    10 MCG;SC
     Route: 058
     Dates: start: 20050801, end: 20060101
  2. BYETTA [Suspect]
     Indication: DRUG EXPOSURE VIA BREAST MILK
     Dosage: SC     SC    10 MCG;SC
     Route: 058
     Dates: start: 20061001, end: 20070101

REACTIONS (2)
  - DRUG EXPOSURE VIA BREAST MILK [None]
  - JAUNDICE NEONATAL [None]
